FAERS Safety Report 8895554 (Version 2)
Quarter: 2013Q1

REPORT INFORMATION
  Report Type: Report from Study
  Country: JP (occurrence: JP)
  Receive Date: 20121108
  Receipt Date: 20130108
  Transmission Date: 20140127
  Serious: Yes (Death, Hospitalization)
  Sender: FDA-Public Use
  Company Number: JP-VIIV HEALTHCARE LIMITED-B0593976A

PATIENT
  Age: 61 Year
  Sex: Male
  Weight: 50 kg

DRUGS (29)
  1. LEXIVA [Suspect]
     Indication: ACQUIRED IMMUNODEFICIENCY SYNDROME
     Dosage: 1400MG TWICE PER DAY
     Route: 048
     Dates: start: 20050817, end: 201108
  2. ZIAGEN [Suspect]
     Indication: ACQUIRED IMMUNODEFICIENCY SYNDROME
     Route: 048
     Dates: start: 20040114, end: 20040331
  3. ZIAGEN [Suspect]
     Indication: ACQUIRED IMMUNODEFICIENCY SYNDROME
     Dosage: 300MG TWICE PER DAY
     Route: 048
     Dates: start: 20040401, end: 20050623
  4. ZIAGEN [Suspect]
     Indication: ACQUIRED IMMUNODEFICIENCY SYNDROME
     Dosage: 300MG TWICE PER DAY
     Route: 048
     Dates: start: 20050817, end: 201108
  5. EPIVIR [Suspect]
     Indication: ACQUIRED IMMUNODEFICIENCY SYNDROME
     Dosage: 150MG TWICE PER DAY
     Route: 048
     Dates: start: 19970228, end: 19991031
  6. EPIVIR [Suspect]
     Indication: ACQUIRED IMMUNODEFICIENCY SYNDROME
     Route: 048
     Dates: start: 19991101, end: 20030331
  7. EPIVIR [Suspect]
     Indication: ACQUIRED IMMUNODEFICIENCY SYNDROME
     Dosage: 150MG TWICE PER DAY
     Route: 048
     Dates: start: 20030401, end: 20040113
  8. EPIVIR [Suspect]
     Indication: ACQUIRED IMMUNODEFICIENCY SYNDROME
     Dosage: 150MG PER DAY
     Route: 048
     Dates: start: 20040114, end: 20040331
  9. EPIVIR [Suspect]
     Indication: ACQUIRED IMMUNODEFICIENCY SYNDROME
     Route: 048
     Dates: start: 20040401, end: 20050324
  10. EPIVIR [Suspect]
     Indication: ACQUIRED IMMUNODEFICIENCY SYNDROME
     Route: 048
     Dates: start: 20050325, end: 20050623
  11. EPIVIR [Suspect]
     Indication: ACQUIRED IMMUNODEFICIENCY SYNDROME
     Route: 048
     Dates: start: 20050817, end: 201108
  12. FUROSEMIDE [Concomitant]
     Indication: HYPERTENSION
     Dosage: 40MG TWICE PER DAY
     Route: 065
     Dates: start: 20081110, end: 20081122
  13. FUROSEMIDE [Concomitant]
     Route: 065
  14. BAYASPIRIN [Concomitant]
     Route: 048
  15. ALDOMET [Concomitant]
     Indication: HYPERTENSION
     Dosage: 125MG THREE TIMES PER DAY
     Route: 048
     Dates: start: 20081110, end: 20081122
  16. ALDOMET [Concomitant]
     Route: 065
  17. SIGMART [Concomitant]
     Route: 048
  18. HERBESSER [Concomitant]
     Indication: HYPERTENSION
     Dosage: 100MG PER DAY
     Route: 065
     Dates: start: 20081110, end: 20081122
  19. HERBESSER [Concomitant]
     Route: 065
  20. ITOROL [Concomitant]
     Route: 048
  21. RENIVACE [Concomitant]
     Route: 048
  22. CARDENALIN [Concomitant]
     Route: 048
  23. ADALAT [Concomitant]
     Route: 048
  24. PANALDINE [Concomitant]
     Indication: HYPERTENSION
     Dosage: 100MG TWICE PER DAY
     Route: 048
     Dates: start: 20081109, end: 20081122
  25. OMEPRAL [Concomitant]
     Indication: PROPHYLAXIS AGAINST GASTROINTESTINAL ULCER
     Dosage: 20MG PER DAY
     Route: 048
     Dates: start: 20081110, end: 20081122
  26. PRECIPITATED CALCIUM CARBONATE [Concomitant]
     Indication: GASTRITIS PROPHYLAXIS
     Dosage: 1G THREE TIMES PER DAY
     Route: 065
     Dates: start: 20081110, end: 20081122
  27. ADALAT-CR [Concomitant]
     Indication: HYPERTENSION
     Dosage: 20MG PER DAY
     Route: 048
     Dates: start: 20081110, end: 20081122
  28. ADALAT-CR [Concomitant]
     Route: 065
  29. PLAVIX [Concomitant]
     Indication: THROMBOSIS PROPHYLAXIS
     Dosage: 25MG PER DAY
     Route: 048
     Dates: start: 20081120, end: 20081127

REACTIONS (6)
  - Pancytopenia [Not Recovered/Not Resolved]
  - Putamen haemorrhage [Fatal]
  - Angina pectoris [Recovering/Resolving]
  - Chest discomfort [Recovering/Resolving]
  - Chest pain [Recovering/Resolving]
  - Calculus ureteric [Recovered/Resolved]
